FAERS Safety Report 9026022 (Version 1)
Quarter: 2012Q4

REPORT INFORMATION
  Report Type: Spontaneous
  Country: US (occurrence: None)
  Receive Date: 20121214
  Receipt Date: 20121214
  Transmission Date: 20130627
  Serious: Yes (Disabling)
  Sender: FDA-Public Use
  Company Number: None

PATIENT
  Age: 51 Year
  Sex: Female
  Weight: 58.97 kg

DRUGS (1)
  1. ADVAIR [Suspect]
     Indication: SARCOIDOSIS
     Route: 055
     Dates: start: 20031015, end: 20121205

REACTIONS (1)
  - Cataract [None]
